FAERS Safety Report 17398874 (Version 2)
Quarter: 2020Q1

REPORT INFORMATION
  Report Type: Report from Study
  Country: US (occurrence: US)
  Receive Date: 20200210
  Receipt Date: 20200220
  Transmission Date: 20200409
  Serious: Yes (Death, Hospitalization)
  Sender: FDA-Public Use
  Company Number: US-ACTELION-A-US2018-183684

PATIENT
  Age: 74 Year
  Sex: Female
  Weight: 92.52 kg

DRUGS (32)
  1. OXYGEN. [Concomitant]
     Active Substance: OXYGEN
     Dosage: 4-5 LITERS OXYGEN AT HOME
  2. ADCIRCA [Concomitant]
     Active Substance: TADALAFIL
     Dosage: 20 MG, QD
     Dates: start: 20151207
  3. LEXAPRO [Concomitant]
     Active Substance: ESCITALOPRAM OXALATE
  4. DIGITEK [Concomitant]
     Active Substance: DIGOXIN
     Dosage: 250 MCG, QD
     Dates: start: 20181018
  5. FISH OIL [Concomitant]
     Active Substance: FISH OIL
     Dosage: 1000 MG, QD
     Dates: start: 20120125
  6. SULFASALAZINE. [Concomitant]
     Active Substance: SULFASALAZINE
     Dosage: 500 MG, BID
     Dates: start: 20161031
  7. SILDENAFIL. [Suspect]
     Active Substance: SILDENAFIL
     Indication: PULMONARY ARTERIAL HYPERTENSION
     Dosage: 20 MG, TID
     Route: 048
     Dates: start: 20180711
  8. PLAQUENIL [Concomitant]
     Active Substance: HYDROXYCHLOROQUINE SULFATE
     Dosage: 200 MG, BID
     Dates: start: 20160112
  9. EZETIMIBE. [Concomitant]
     Active Substance: EZETIMIBE
     Dosage: 10 MG, QD
     Dates: start: 20181231
  10. ZEBETA [Concomitant]
     Active Substance: BISOPROLOL FUMARATE
     Dosage: 2.5 MG, QD
     Dates: start: 20200106
  11. BISOPROLOL [Concomitant]
     Active Substance: BISOPROLOL
     Dosage: 5 MG 1/2 MOUTH DAILY
  12. ASPIRIN. [Concomitant]
     Active Substance: ASPIRIN
     Dosage: 81 MG, QD
     Dates: start: 20150819
  13. ESCITALOPRAM OXALATE. [Concomitant]
     Active Substance: ESCITALOPRAM OXALATE
     Dosage: UNK, QD
     Dates: start: 20180307
  14. CARVEDILOL. [Concomitant]
     Active Substance: CARVEDILOL
     Indication: HYPERTENSION
     Dosage: 6.25 MG, BID
  15. METOLAZONE. [Concomitant]
     Active Substance: METOLAZONE
     Dosage: 2.5 MG  1 TABLET 1/2 HR BEFORE TORSEMIDE BID A WEEK TUESDAY AND FRIDAY
     Dates: start: 20180505
  16. MOBIC [Concomitant]
     Active Substance: MELOXICAM
     Dosage: 15 MG, QD
     Dates: start: 20191014
  17. UPTRAVI [Suspect]
     Active Substance: SELEXIPAG
     Indication: PULMONARY ARTERIAL HYPERTENSION
     Dosage: 600 MCG, BID
     Route: 048
  18. ELIQUIS [Concomitant]
     Active Substance: APIXABAN
     Indication: THROMBOSIS
     Dosage: 5 MG, BID
  19. ESCITALOPRAM [Concomitant]
     Active Substance: ESCITALOPRAM OXALATE
     Dosage: 0.5 DF, QD
  20. TADALAFIL. [Concomitant]
     Active Substance: TADALAFIL
  21. LANTUS [Concomitant]
     Active Substance: INSULIN GLARGINE
     Dosage: 8 UNITS
  22. UPTRAVI [Suspect]
     Active Substance: SELEXIPAG
     Dosage: 800 MCG, BID
     Route: 048
  23. VERAPAMIL [Concomitant]
     Active Substance: VERAPAMIL HYDROCHLORIDE
     Dosage: 120 MG, EVERY 8 HOURS
     Dates: start: 20170307
  24. OXYBUTYNIN. [Concomitant]
     Active Substance: OXYBUTYNIN CHLORIDE
     Dosage: 5 MG, QD
     Dates: start: 20190722
  25. VICTOZA [Concomitant]
     Active Substance: LIRAGLUTIDE
     Dosage: 1.25MG UNDER THE SKIN QD
     Route: 058
     Dates: start: 20181030
  26. LETAIRIS [Concomitant]
     Active Substance: AMBRISENTAN
     Indication: HYPERTENSION
     Dosage: 5 MG, QD
  27. METFORMIN [Concomitant]
     Active Substance: METFORMIN HYDROCHLORIDE
     Dosage: 500 MG, BID
     Dates: start: 20180219
  28. FOLIC ACID. [Concomitant]
     Active Substance: FOLIC ACID
     Dosage: 1 MG, QD
     Dates: start: 20160428
  29. UPTRAVI [Suspect]
     Active Substance: SELEXIPAG
     Dosage: 200 MCG
     Route: 048
     Dates: start: 20180611
  30. OXYGEN. [Concomitant]
     Active Substance: OXYGEN
     Dosage: 5 LITERS INTERMITTENT WITH AMBULATION
  31. LISINOPRIL. [Concomitant]
     Active Substance: LISINOPRIL
     Dosage: 2.5 MG 1/2 TABLET BY MOUTH DAILY
     Dates: start: 20190416
  32. TORSEMIDE. [Concomitant]
     Active Substance: TORSEMIDE
     Dosage: 20 MG, QD
     Dates: start: 20180430

REACTIONS (23)
  - Contusion [Unknown]
  - Haematochezia [Unknown]
  - Respiratory failure [Fatal]
  - Syncope [Recovered/Resolved]
  - Haemoglobin decreased [Recovering/Resolving]
  - Rheumatoid arthritis [Recovering/Resolving]
  - Blood pressure decreased [Unknown]
  - Pulmonary hypertension [Unknown]
  - Urinary incontinence [Unknown]
  - Influenza like illness [Unknown]
  - Fatigue [Unknown]
  - Haemorrhoidal haemorrhage [Unknown]
  - Malaise [Unknown]
  - Dizziness [Unknown]
  - Head discomfort [Unknown]
  - Urinary tract discomfort [Unknown]
  - Cardiac arrest [Fatal]
  - Loss of consciousness [Unknown]
  - Anaemia [Recovering/Resolving]
  - Dyspnoea exertional [Unknown]
  - Blood glucose decreased [Unknown]
  - Wound [Unknown]
  - Dyspnoea [Unknown]

NARRATIVE: CASE EVENT DATE: 20181219
